FAERS Safety Report 26087448 (Version 1)
Quarter: 2025Q4

REPORT INFORMATION
  Report Type: Spontaneous
  Country: CN (occurrence: CN)
  Receive Date: 20251125
  Receipt Date: 20251125
  Transmission Date: 20260117
  Serious: Yes (Hospitalization)
  Sender: PFIZER
  Company Number: CN-PFIZER INC-PV202500136378

PATIENT
  Age: 29 Year
  Sex: Female
  Weight: 45 kg

DRUGS (2)
  1. METHOTREXATE SODIUM [Suspect]
     Active Substance: METHOTREXATE SODIUM
     Indication: Ectopic pregnancy
     Dosage: 70.000 MG, 1X/DAY
     Route: 030
     Dates: start: 20251104, end: 20251104
  2. DA HUANG ZHE CHONG [Concomitant]
     Indication: Ectopic pregnancy
     Dosage: 4.000 DF, 2X/DAY
     Route: 048
     Dates: start: 20251028, end: 20251104

REACTIONS (5)
  - Dizziness [Recovering/Resolving]
  - Nausea [Recovering/Resolving]
  - Poor quality sleep [Recovering/Resolving]
  - Faeces soft [Recovering/Resolving]
  - Off label use [Unknown]

NARRATIVE: CASE EVENT DATE: 20251104
